FAERS Safety Report 6801773-0 (Version None)
Quarter: 2010Q2

REPORT INFORMATION
  Report Type: 
  Country: None (occurrence: None)
  Receive Date: 20100629
  Receipt Date: 20100616
  Transmission Date: 20101027
  Serious: Yes (Hospitalization)
  Sender: FDA-Public Use
  Company Number: PHHY2010US39618

PATIENT

DRUGS (1)
  1. FANAPT [Suspect]
     Route: 048

REACTIONS (1)
  - PULMONARY EMBOLISM [None]
